FAERS Safety Report 8844068 (Version 1)
Quarter: 2012Q4

REPORT INFORMATION
  Report Type: 
  Country: US (occurrence: US)
  Receive Date: 20121017
  Receipt Date: 20121017
  Transmission Date: 20130627
  Serious: No
  Sender: FDA-Public Use
  Company Number: US-B.I. PHARMACEUTICALS,INC./RIDGEFIELD-2012-BP-24202BP

PATIENT
  Age: 65 Year
  Sex: Female
  Weight: 68 kg

DRUGS (22)
  1. SPIRIVA [Suspect]
     Indication: CHRONIC OBSTRUCTIVE PULMONARY DISEASE
     Dosage: 18 mcg
     Route: 055
     Dates: start: 20120921
  2. SPIRIVA [Suspect]
     Route: 048
     Dates: start: 20121002, end: 20121002
  3. CYMBALTA [Concomitant]
     Indication: DEPRESSION
     Dosage: 60 mg
     Route: 048
     Dates: start: 2002
  4. ABILIFY [Concomitant]
     Indication: DEPRESSION
     Dosage: 2 mg
     Route: 048
     Dates: start: 2002
  5. BUTRANS PATCH [Concomitant]
     Indication: PAIN
     Route: 061
     Dates: start: 201209
  6. POT CL MICRO [Concomitant]
     Indication: MINERAL SUPPLEMENTATION
     Dosage: 40 mEq
     Route: 048
     Dates: start: 2011
  7. CLOZAPINE [Concomitant]
     Indication: ANXIETY
     Dosage: 1 mg
     Route: 048
     Dates: start: 2007
  8. SINGULAIR [Concomitant]
     Indication: ASTHMA
     Dosage: 10 mg
     Route: 048
     Dates: start: 2002
  9. PRO AIR INHALER [Concomitant]
     Indication: INHALATION THERAPY
     Route: 055
     Dates: start: 2002
  10. LEVOTHYROXINE [Concomitant]
     Indication: HYPOTHYROIDISM
     Dosage: 0.025 mg
     Route: 048
     Dates: start: 2007
  11. NEXIUM [Concomitant]
     Indication: GASTROOESOPHAGEAL REFLUX DISEASE
     Dosage: 40 mg
     Route: 048
     Dates: start: 2001
  12. PROPRANOLOL [Concomitant]
     Indication: TREMOR
     Dosage: 40 mg
     Route: 048
     Dates: start: 2010
  13. HYOMAX SL [Concomitant]
     Indication: ABDOMINAL PAIN
     Route: 048
     Dates: start: 2002
  14. FLUTICASONE NASAL SPRAY [Concomitant]
     Indication: MULTIPLE ALLERGIES
     Route: 045
     Dates: start: 2007
  15. RECLAST INFUSION [Concomitant]
     Indication: OSTEOPOROSIS
     Route: 042
     Dates: start: 2007
  16. SPIRONOLACTONE [Concomitant]
     Indication: OEDEMA
     Dosage: 25 mg
     Route: 048
     Dates: start: 2008
  17. ADVAIR [Concomitant]
     Indication: ASTHMA
     Dosage: 2 puf
     Route: 055
     Dates: start: 20120918
  18. TOPAMAX [Concomitant]
     Indication: MIGRAINE PROPHYLAXIS
     Dosage: 100 mg
     Route: 048
     Dates: start: 1997
  19. BACLOFEN [Concomitant]
     Indication: MUSCLE SPASMS
     Dosage: 30 mg
     Route: 048
     Dates: start: 2001
  20. XOPENEX [Concomitant]
     Indication: ASTHMA
     Route: 055
     Dates: start: 2002
  21. VOLTAREN GEL [Concomitant]
     Indication: PAIN
     Route: 061
     Dates: start: 201203
  22. SUMATRIPTAN [Concomitant]
     Indication: MIGRAINE
     Route: 048
     Dates: start: 201203

REACTIONS (1)
  - Incorrect route of drug administration [Recovered/Resolved]
